FAERS Safety Report 13118187 (Version 2)
Quarter: 2017Q2

REPORT INFORMATION
  Report Type: Spontaneous
  Country: US (occurrence: US)
  Receive Date: 20170116
  Receipt Date: 20170512
  Transmission Date: 20170830
  Serious: No
  Sender: FDA-Public Use
  Company Number: US-JNJFOC-20161217284

PATIENT
  Sex: Male

DRUGS (4)
  1. RIPSERDAL [Suspect]
     Active Substance: RISPERIDONE
     Indication: AGGRESSION
     Route: 048
  2. INVEGA [Suspect]
     Active Substance: PALIPERIDONE
     Indication: PRODUCT USED FOR UNKNOWN INDICATION
     Route: 048
  3. RIPSERDAL [Suspect]
     Active Substance: RISPERIDONE
     Indication: CONDUCT DISORDER
     Route: 048
  4. RIPSERDAL [Suspect]
     Active Substance: RISPERIDONE
     Indication: DYSPHORIA
     Route: 048

REACTIONS (1)
  - Injury [Unknown]
